FAERS Safety Report 7109055-7 (Version None)
Quarter: 2010Q4

REPORT INFORMATION
  Report Type: 
  Country: None (occurrence: None)
  Receive Date: 20101117
  Receipt Date: 20101110
  Transmission Date: 20110411
  Serious: Yes (Other)
  Sender: FDA-Public Use
  Company Number: US-US-EMD SERONO, INC.-7027067

PATIENT
  Sex: Male
  Weight: 100 kg

DRUGS (1)
  1. REBIF [Suspect]
     Indication: MULTIPLE SCLEROSIS
     Route: 058
     Dates: start: 20051128

REACTIONS (6)
  - ANXIETY [None]
  - AUTOIMMUNE DISORDER [None]
  - IMMUNE COMPLEX LEVEL INCREASED [None]
  - JOINT INJURY [None]
  - PHARYNGEAL MASS [None]
  - VEIN DISORDER [None]
